FAERS Safety Report 7569335-8 (Version None)
Quarter: 2011Q2

REPORT INFORMATION
  Report Type: 
  Country: None (occurrence: None)
  Receive Date: 20110623
  Receipt Date: 20110620
  Transmission Date: 20111010
  Serious: Yes (Other)
  Sender: FDA-Public Use
  Company Number: US-PFIZER INC-2011136454

PATIENT
  Sex: Female
  Weight: 59.864 kg

DRUGS (5)
  1. DOXYCYCLINE HYCLATE [Suspect]
     Indication: BRONCHOSPASM
     Dosage: UNK
     Dates: start: 20110101
  2. DIAZEPAM [Concomitant]
     Dosage: 15 MG, DAILY
  3. NORVASC [Concomitant]
     Dosage: UNK
  4. AZITHROMYCIN [Suspect]
     Indication: PNEUMONIA
     Dosage: 250 MG TWO TABLETS ONCE A DAY
     Route: 048
     Dates: start: 20110301, end: 20110601
  5. HYDROCODONE [Concomitant]
     Dosage: 10 MG, AS NEEDED

REACTIONS (13)
  - BURNING SENSATION [None]
  - NASOPHARYNGITIS [None]
  - DYSPNOEA [None]
  - MALAISE [None]
  - BRONCHOSPASM [None]
  - DRUG INEFFECTIVE [None]
  - PARAESTHESIA [None]
  - PAIN [None]
  - NEUROPATHY PERIPHERAL [None]
  - LIMB DISCOMFORT [None]
  - DYSPHAGIA [None]
  - ASTHENIA [None]
  - ILL-DEFINED DISORDER [None]
